FAERS Safety Report 25589846 (Version 1)
Quarter: 2025Q3

REPORT INFORMATION
  Report Type: Report from Study
  Country: CA (occurrence: CA)
  Receive Date: 20250722
  Receipt Date: 20250722
  Transmission Date: 20251020
  Serious: Yes (Other)
  Sender: ABBVIE
  Company Number: CA-ABBVIE-6332625

PATIENT
  Age: 63 Year
  Sex: Female

DRUGS (1)
  1. SKYRIZI [Suspect]
     Active Substance: RISANKIZUMAB-RZAA
     Indication: Crohn^s disease
     Dosage: LAST DOSE DATED: 06 JUN 2025
     Route: 058
     Dates: start: 20250606

REACTIONS (2)
  - Nephrolithiasis [Unknown]
  - Renal procedural complication [Unknown]

NARRATIVE: CASE EVENT DATE: 20250707
